FAERS Safety Report 8716365 (Version 2)
Quarter: 2013Q4

REPORT INFORMATION
  Report Type: Report from Study
  Country: US (occurrence: US)
  Receive Date: 20120810
  Receipt Date: 20131106
  Transmission Date: 20140711
  Serious: Yes (Other)
  Sender: FDA-Public Use
  Company Number: US-009507513-1208USA003088

PATIENT
  Sex: Female

DRUGS (3)
  1. PEG-INTRON [Suspect]
     Indication: CHRONIC HEPATITIS C
     Dosage: UNK
     Route: 058
     Dates: start: 20120101, end: 20120728
  2. REBETOL [Suspect]
     Indication: CHRONIC HEPATITIS C
     Dosage: UNK
     Route: 048
     Dates: start: 20120101, end: 20120728
  3. VICTRELIS [Suspect]
     Indication: CHRONIC HEPATITIS C
     Dosage: UNK
     Route: 048
     Dates: start: 20120129, end: 20120728

REACTIONS (7)
  - Cerebrovascular accident [Unknown]
  - Alopecia [Unknown]
  - Eye disorder [Unknown]
  - Platelet count decreased [Unknown]
  - Arthralgia [Unknown]
  - Back pain [Unknown]
  - Anaemia [Unknown]
